FAERS Safety Report 22171435 (Version 2)
Quarter: 2023Q2

REPORT INFORMATION
  Report Type: Spontaneous
  Country: CN (occurrence: CN)
  Receive Date: 20230404
  Receipt Date: 20230509
  Transmission Date: 20230722
  Serious: Yes (Other)
  Sender: FDA-Public Use
  Company Number: CN-JNJFOC-20230359227

PATIENT

DRUGS (26)
  1. IMBRUVICA [Suspect]
     Active Substance: IBRUTINIB
     Indication: Chronic lymphocytic leukaemia
     Route: 048
  2. CALQUENCE [Suspect]
     Active Substance: ACALABRUTINIB
     Indication: Non-Hodgkin^s lymphoma
     Route: 065
  3. COMIRNATY [Suspect]
     Active Substance: TOZINAMERAN
     Indication: Waldenstrom^s macroglobulinaemia
     Route: 065
  4. OBINUTUZUMAB [Suspect]
     Active Substance: OBINUTUZUMAB
     Indication: Waldenstrom^s macroglobulinaemia
     Route: 065
  5. APIXABAN [Suspect]
     Active Substance: APIXABAN
     Indication: B-cell small lymphocytic lymphoma
     Route: 065
  6. TEMOZOLOMIDE [Suspect]
     Active Substance: TEMOZOLOMIDE
     Indication: Mantle cell lymphoma
     Route: 065
  7. RIVAROXABAN [Suspect]
     Active Substance: RIVAROXABAN
     Indication: B-cell small lymphocytic lymphoma
     Route: 065
  8. CYCLOPHOSPHAMIDE [Concomitant]
     Active Substance: CYCLOPHOSPHAMIDE
     Indication: Product used for unknown indication
  9. NIVOLUMAB [Suspect]
     Active Substance: NIVOLUMAB
     Indication: Mantle cell lymphoma
     Route: 065
  10. BENDAMUSTINE [Suspect]
     Active Substance: BENDAMUSTINE
     Indication: Non-Hodgkin^s lymphoma
     Route: 065
  11. LENALIDOMIDE [Suspect]
     Active Substance: LENALIDOMIDE
     Indication: Non-Hodgkin^s lymphoma
     Route: 065
  12. METHOTREXATE [Concomitant]
     Active Substance: METHOTREXATE
     Indication: Product used for unknown indication
  13. VENETOCLAX [Suspect]
     Active Substance: VENETOCLAX
     Indication: Chronic lymphocytic leukaemia
     Route: 048
  14. CARBOPLATIN [Concomitant]
     Active Substance: CARBOPLATIN
     Indication: Product used for unknown indication
  15. SULFAMETHOXAZOLE\TRIMETHOPRIM [Suspect]
     Active Substance: SULFAMETHOXAZOLE\TRIMETHOPRIM
     Indication: Waldenstrom^s macroglobulinaemia
     Route: 065
  16. FLUDARABINE [Suspect]
     Active Substance: FLUDARABINE PHOSPHATE
     Indication: Chronic lymphocytic leukaemia
     Route: 065
  17. IFOSFAMIDE [Concomitant]
     Active Substance: IFOSFAMIDE
     Indication: Product used for unknown indication
  18. SPIKEVAX [Suspect]
     Active Substance: ELASOMERAN
     Indication: Waldenstrom^s macroglobulinaemia
     Route: 065
  19. MABTHERA [Suspect]
     Active Substance: RITUXIMAB
     Indication: Mantle cell lymphoma
     Route: 065
  20. DOXYCYCLINE [Concomitant]
     Active Substance: DOXYCYCLINE
     Indication: Product used for unknown indication
  21. OFATUMUMAB [Concomitant]
     Active Substance: OFATUMUMAB
     Indication: Product used for unknown indication
  22. DEXAMETHASONE [Concomitant]
     Active Substance: DEXAMETHASONE
     Indication: Product used for unknown indication
  23. PREDNISONE [Suspect]
     Active Substance: PREDNISONE
     Indication: Mantle cell lymphoma
     Route: 065
  24. ETOPOSIDE [Concomitant]
     Active Substance: ETOPOSIDE
     Indication: Product used for unknown indication
  25. ASPIRIN [Suspect]
     Active Substance: ASPIRIN
     Indication: B-cell small lymphocytic lymphoma
     Route: 065
  26. ALLOPURINOL [Suspect]
     Active Substance: ALLOPURINOL
     Indication: B-cell small lymphocytic lymphoma
     Route: 065

REACTIONS (59)
  - Haematotympanum [Unknown]
  - Onychoclasis [Unknown]
  - Fall [Unknown]
  - Cerebrovascular accident [Unknown]
  - Ventricular tachycardia [Unknown]
  - Contusion [Unknown]
  - Atrial fibrillation [Unknown]
  - Hepatitis E [Unknown]
  - Hepatitis B reactivation [Unknown]
  - Blood viscosity decreased [Unknown]
  - Dizziness [Unknown]
  - Cerebral aspergillosis [Unknown]
  - Haemorrhagic diathesis [Unknown]
  - Pleural effusion [Unknown]
  - Haemoglobin decreased [Unknown]
  - Transient ischaemic attack [Unknown]
  - Arrhythmia [Unknown]
  - Pneumonia cryptococcal [Unknown]
  - Anaemia [Unknown]
  - Pyrexia [Unknown]
  - Nail growth abnormal [Unknown]
  - Angina bullosa haemorrhagica [Unknown]
  - Haemothorax [Unknown]
  - Peripheral swelling [Unknown]
  - Glaucoma [Unknown]
  - Platelet count abnormal [Unknown]
  - Septic shock [Unknown]
  - Microsporidia infection [Unknown]
  - Ear haemorrhage [Unknown]
  - Blood blister [Unknown]
  - Lymphocytosis [Unknown]
  - Haemorrhage [Unknown]
  - Infection [Unknown]
  - Arthralgia [Unknown]
  - Increased tendency to bruise [Unknown]
  - Asthenia [Unknown]
  - Disease progression [Unknown]
  - Fracture [Unknown]
  - Epistaxis [Unknown]
  - Rash [Unknown]
  - Muscle spasms [Unknown]
  - White blood cell count increased [Unknown]
  - Pneumonia [Unknown]
  - Aspergillus infection [Unknown]
  - Conduction disorder [Unknown]
  - Neutropenia [Unknown]
  - Cytopenia [Unknown]
  - Intentional product use issue [Unknown]
  - Hepatitis B [Unknown]
  - Platelet count decreased [Unknown]
  - Diarrhoea [Unknown]
  - White blood cell count abnormal [Unknown]
  - Fatigue [Unknown]
  - Ventricular fibrillation [Unknown]
  - White blood cell count decreased [Unknown]
  - Petechiae [Unknown]
  - Febrile neutropenia [Unknown]
  - Lymphadenopathy [Unknown]
  - Thrombocytopenia [Unknown]
